FAERS Safety Report 15340567 (Version 2)
Quarter: 2018Q3

REPORT INFORMATION
  Report Type: Spontaneous
  Country: US (occurrence: US)
  Receive Date: 20180831
  Receipt Date: 20180920
  Transmission Date: 20181010
  Serious: Yes (Hospitalization)
  Sender: FDA-Public Use
  Company Number: US-ACTELION-A-US2018-178036

PATIENT
  Age: 84 Year
  Sex: Female

DRUGS (20)
  1. ATORVASTATIN CALCIUM. [Concomitant]
     Active Substance: ATORVASTATIN CALCIUM
  2. FUROSEMIDE. [Concomitant]
     Active Substance: FUROSEMIDE
  3. METOPROLOL SUCCINATE. [Concomitant]
     Active Substance: METOPROLOL SUCCINATE
  4. TYLENOL [Concomitant]
     Active Substance: ACETAMINOPHEN
  5. PRILOSEC [Concomitant]
     Active Substance: OMEPRAZOLE MAGNESIUM
  6. ZOLPIDEM TARTRATE. [Concomitant]
     Active Substance: ZOLPIDEM TARTRATE
  7. LANTUS [Concomitant]
     Active Substance: INSULIN GLARGINE
  8. SPIRONOLACTONE. [Concomitant]
     Active Substance: SPIRONOLACTONE
  9. OPSUMIT [Suspect]
     Active Substance: MACITENTAN
     Dosage: 10 MG, EVERY OTHER DAY
     Route: 048
  10. EZFE [Concomitant]
  11. METFORMIN HCL [Concomitant]
     Active Substance: METFORMIN HYDROCHLORIDE
  12. OPSUMIT [Suspect]
     Active Substance: MACITENTAN
     Indication: PULMONARY ARTERIAL HYPERTENSION
     Dosage: 10 MG, UNK
     Route: 048
  13. NOVOLOG [Concomitant]
     Active Substance: INSULIN ASPART
  14. ASPIRIN. [Concomitant]
     Active Substance: ASPIRIN
  15. LORAZEPAM. [Concomitant]
     Active Substance: LORAZEPAM
  16. LOSARTAN. [Concomitant]
     Active Substance: LOSARTAN
  17. LEVOTHYROXINE. [Concomitant]
     Active Substance: LEVOTHYROXINE
  18. AMITRIPTYLINE HCL [Concomitant]
     Active Substance: AMITRIPTYLINE
  19. ESTRIOL [Concomitant]
     Active Substance: ESTRIOL
  20. POTASSIUM [Concomitant]
     Active Substance: POTASSIUM

REACTIONS (3)
  - Myocardial infarction [Recovering/Resolving]
  - Drug ineffective [Unknown]
  - Prescribed underdose [Unknown]
